FAERS Safety Report 9685935 (Version 1)
Quarter: 2013Q4

REPORT INFORMATION
  Report Type: Spontaneous
  Country: US (occurrence: US)
  Receive Date: 20131113
  Receipt Date: 20131113
  Transmission Date: 20140711
  Serious: No
  Sender: FDA-Public Use
  Company Number: US-BAYER-2013-137470

PATIENT
  Sex: Female

DRUGS (1)
  1. ALEVE CAPLET [Suspect]
     Indication: HEADACHE
     Dosage: 1 DF, ONCE
     Route: 048
     Dates: start: 20131106, end: 20131106

REACTIONS (1)
  - Drug ineffective [None]
